FAERS Safety Report 5011910-9 (Version None)
Quarter: 2006Q2

REPORT INFORMATION
  Report Type: 
  Country: None (occurrence: None)
  Receive Date: 20060524
  Receipt Date: 20060524
  Transmission Date: 20061013
  Serious: Yes (Hospitalization)
  Sender: FDA-Public Use
  Company Number: None

PATIENT
  Sex: Male
  Weight: 93.2 kg

DRUGS (2)
  1. VERAPAMIL HCL [Suspect]
     Indication: HYPERTENSION
     Dosage: 1 TAB QD ORAL
     Route: 048
     Dates: start: 20030123, end: 20060124
  2. ATENOLOL [Suspect]
     Dosage: 1 TAB QD ORAL
     Route: 048
     Dates: start: 20000906

REACTIONS (12)
  - ATRIOVENTRICULAR BLOCK COMPLETE [None]
  - ATRIOVENTRICULAR BLOCK FIRST DEGREE [None]
  - BRADYCARDIA [None]
  - CARDIAC DISORDER [None]
  - CONFUSIONAL STATE [None]
  - ELECTROCARDIOGRAM T WAVE INVERSION [None]
  - HYPOTENSION [None]
  - HYPOTHYROIDISM [None]
  - LOBAR PNEUMONIA [None]
  - MYOCARDIAL ISCHAEMIA [None]
  - NODAL RHYTHM [None]
  - QRS AXIS ABNORMAL [None]
